FAERS Safety Report 16410632 (Version 1)
Quarter: 2019Q2

REPORT INFORMATION
  Report Type: Spontaneous
  Country: CA (occurrence: CA)
  Receive Date: 20190610
  Receipt Date: 20190610
  Transmission Date: 20190711
  Serious: Yes (Other)
  Sender: FDA-Public Use
  Company Number: CA-PFIZER INC-2019244791

PATIENT
  Age: 59 Year
  Sex: Male

DRUGS (14)
  1. SEROQUEL [Interacting]
     Active Substance: QUETIAPINE FUMARATE
     Dosage: 75 MG, UNK
     Route: 065
  2. SEROQUEL [Interacting]
     Active Substance: QUETIAPINE FUMARATE
     Dosage: 300 MG, UNK
  3. ATIVAN [Interacting]
     Active Substance: LORAZEPAM
     Dosage: 2 MG, UNK
     Route: 065
  4. KETOCONAZOLE. [Interacting]
     Active Substance: KETOCONAZOLE
     Dosage: 2 %, UNK
     Route: 065
  5. MIRTAZAPINE. [Concomitant]
     Active Substance: MIRTAZAPINE
     Dosage: UNK
  6. SEROQUEL [Interacting]
     Active Substance: QUETIAPINE FUMARATE
     Dosage: 100 MG, UNK
  7. NICOTINE. [Concomitant]
     Active Substance: NICOTINE
     Dosage: UNK
  8. QUETIAPINE. [Concomitant]
     Active Substance: QUETIAPINE
     Dosage: UNK
  9. ATIVAN [Interacting]
     Active Substance: LORAZEPAM
     Dosage: 4 MG, UNK
  10. ZOPICLONE [Interacting]
     Active Substance: ZOPICLONE
     Dosage: 7.5 MG, 1X/DAY
     Route: 048
  11. VENLAFAXINE XR [Concomitant]
     Active Substance: VENLAFAXINE HYDROCHLORIDE
     Dosage: UNK
  12. LORAZEPAM. [Concomitant]
     Active Substance: LORAZEPAM
     Dosage: UNK
  13. SEROQUEL [Interacting]
     Active Substance: QUETIAPINE FUMARATE
     Dosage: 200 MG, UNK
  14. EFFEXOR XR [Suspect]
     Active Substance: VENLAFAXINE HYDROCHLORIDE
     Dosage: 150 MG, UNK
     Route: 048

REACTIONS (7)
  - Drug interaction [Recovered/Resolved]
  - Jaw fracture [Recovered/Resolved]
  - Blood pressure decreased [Recovered/Resolved]
  - Sensory loss [Recovered/Resolved]
  - Dizziness [Recovered/Resolved]
  - Loss of consciousness [Recovered/Resolved]
  - Fall [Recovered/Resolved]
